FAERS Safety Report 14652788 (Version 1)
Quarter: 2018Q1

REPORT INFORMATION
  Report Type: Report from Study
  Country: ES (occurrence: ES)
  Receive Date: 20180319
  Receipt Date: 20180319
  Transmission Date: 20180509
  Serious: Yes (Other)
  Sender: FDA-Public Use
  Company Number: ES-BAXTER-2018BAX008566

PATIENT
  Age: 23 Year
  Sex: Male

DRUGS (19)
  1. GENOXAL [Suspect]
     Active Substance: CYCLOPHOSPHAMIDE
     Indication: ACUTE LYMPHOCYTIC LEUKAEMIA RECURRENT
     Dosage: REGIMEN #1, FIRST CYCLE
     Route: 065
     Dates: start: 20140415
  2. GENOXAL [Suspect]
     Active Substance: CYCLOPHOSPHAMIDE
     Dosage: SECOND CYCLE
     Route: 065
     Dates: start: 2014
  3. FLUDARABINE [Suspect]
     Active Substance: FLUDARABINE PHOSPHATE
     Indication: ACUTE LYMPHOCYTIC LEUKAEMIA RECURRENT
     Dosage: REGIMEN #1,
     Route: 065
     Dates: start: 20140928
  4. DOXORUBICIN HCL [Suspect]
     Active Substance: DOXORUBICIN HYDROCHLORIDE
     Indication: ACUTE LYMPHOCYTIC LEUKAEMIA RECURRENT
     Dosage: REGIMEN #1, FIRST CYCLE
     Route: 065
     Dates: start: 20140415
  5. DOXORUBICIN HCL [Suspect]
     Active Substance: DOXORUBICIN HYDROCHLORIDE
     Dosage: SECOND CYCLE
     Route: 065
     Dates: start: 2014
  6. METHOTREXATE SODIUM. [Suspect]
     Active Substance: METHOTREXATE SODIUM
     Dosage: SECOND CYCLE
     Route: 065
     Dates: start: 2014
  7. PONATINIB [Suspect]
     Active Substance: PONATINIB
     Dosage: AFTER HEMATOPOIETIC STEM CELL TRANSPLANTATION
     Route: 065
     Dates: start: 2014
  8. METHOTREXATE SODIUM. [Suspect]
     Active Substance: METHOTREXATE SODIUM
     Indication: ACUTE LYMPHOCYTIC LEUKAEMIA RECURRENT
     Dosage: REGIMEN #1, FIRST CYCLE
     Route: 065
     Dates: start: 20140415
  9. DEXAMETHASONE. [Suspect]
     Active Substance: DEXAMETHASONE
     Indication: ACUTE LYMPHOCYTIC LEUKAEMIA RECURRENT
     Dosage: REGIMEN #1, FIRST CYCLE
     Route: 065
     Dates: start: 20140415
  10. BUSULFAN. [Suspect]
     Active Substance: BUSULFAN
     Indication: ACUTE LYMPHOCYTIC LEUKAEMIA RECURRENT
     Dosage: REGIMEN #1,
     Route: 065
     Dates: start: 20140928
  11. CYTARABINE. [Suspect]
     Active Substance: CYTARABINE
     Indication: ACUTE LYMPHOCYTIC LEUKAEMIA RECURRENT
     Dosage: REGIMEN #1, FIRST CYCLE
     Route: 065
     Dates: start: 20140415
  12. VINCRISTINE SULFATE. [Suspect]
     Active Substance: VINCRISTINE SULFATE
     Indication: ACUTE LYMPHOCYTIC LEUKAEMIA RECURRENT
     Dosage: REGIMEN #1, FIRST CYCLE
     Route: 065
     Dates: start: 20140415
  13. PONATINIB [Suspect]
     Active Substance: PONATINIB
     Dosage: SECOND CYCLE
     Route: 065
     Dates: start: 2014
  14. THIOTEPA. [Suspect]
     Active Substance: THIOTEPA
     Indication: ACUTE LYMPHOCYTIC LEUKAEMIA RECURRENT
     Dosage: REGIMEN #1,
     Route: 065
     Dates: start: 20140928
  15. CYTARABINE. [Suspect]
     Active Substance: CYTARABINE
     Dosage: SECOND CYCLE
     Route: 065
     Dates: start: 2014
  16. VINCRISTINE SULFATE. [Suspect]
     Active Substance: VINCRISTINE SULFATE
     Dosage: SECOND CYCLE
     Route: 065
     Dates: start: 2014
  17. PONATINIB [Suspect]
     Active Substance: PONATINIB
     Indication: ACUTE LYMPHOCYTIC LEUKAEMIA RECURRENT
     Dosage: REGIMEN #1, FIRST CYCLE
     Route: 065
     Dates: start: 20140415
  18. DEXAMETHASONE. [Suspect]
     Active Substance: DEXAMETHASONE
     Dosage: SECOND CYCLE
     Route: 065
     Dates: start: 2014
  19. RITUXIMAB. [Suspect]
     Active Substance: RITUXIMAB
     Indication: PRODUCT USED FOR UNKNOWN INDICATION
     Dosage: REGIMEN #1, FIRST CYCLE
     Route: 065

REACTIONS (1)
  - Acute lymphocytic leukaemia recurrent [Unknown]

NARRATIVE: CASE EVENT DATE: 20141124
